FAERS Safety Report 23107128 (Version 1)
Quarter: 2023Q4

REPORT INFORMATION
  Report Type: Spontaneous
  Country: US (occurrence: US)
  Receive Date: 20231026
  Receipt Date: 20231026
  Transmission Date: 20240110
  Serious: No
  Sender: FDA-Public Use
  Company Number: US-ASCENDIS PHARMA-2023US002642

PATIENT

DRUGS (1)
  1. SKYTROFA [Suspect]
     Active Substance: LONAPEGSOMATROPIN-TCGD
     Indication: Hypopituitarism
     Dosage: 7.6 MILLIGRAM, WEEKLY
     Route: 058
     Dates: start: 20230306, end: 202306

REACTIONS (6)
  - Irritability [Unknown]
  - Decreased appetite [Unknown]
  - Drug ineffective [Unknown]
  - Diarrhoea [Unknown]
  - Abdominal pain upper [Unknown]
  - Injection site pain [Unknown]
